FAERS Safety Report 24672210 (Version 1)
Quarter: 2024Q4

REPORT INFORMATION
  Report Type: Spontaneous
  Country: CH (occurrence: CH)
  Receive Date: 20241127
  Receipt Date: 20241127
  Transmission Date: 20250115
  Serious: Yes (Hospitalization, Other)
  Sender: GLAXOSMITHKLINE
  Company Number: None

PATIENT

DRUGS (13)
  1. FLUTICASONE FUROATE\VILANTEROL TRIFENATATE [Suspect]
     Active Substance: FLUTICASONE FUROATE\VILANTEROL TRIFENATATE
     Indication: Bronchitis
     Dosage: 2 DF, BID
     Route: 055
     Dates: start: 2023
  2. FLUTICASONE FUROATE\VILANTEROL TRIFENATATE [Suspect]
     Active Substance: FLUTICASONE FUROATE\VILANTEROL TRIFENATATE
     Dosage: 2 DF, BID (22/92 ?G, 2-0-2-0 PUFFS)
     Route: 055
     Dates: start: 202403, end: 20241016
  3. FLUIMUCIL [Concomitant]
     Active Substance: ACETYLCYSTEINE
     Indication: Bronchitis
     Dosage: 200 MG, QD (1-0-0-0 )
     Route: 048
     Dates: start: 2022
  4. PREDNISONE [Concomitant]
     Active Substance: PREDNISONE
     Indication: Bronchitis
     Dosage: UNK
     Route: 065
     Dates: start: 20241015, end: 20241019
  5. CHOLECALCIFEROL [Concomitant]
     Active Substance: CHOLECALCIFEROL
     Indication: Vitamin D deficiency
     Dosage: 0.4 ML, QD (0.4-0-0-0)
     Route: 048
  6. ASPIRIN [Concomitant]
     Active Substance: ASPIRIN
     Indication: Peripheral arterial occlusive disease
     Dosage: 100 MG, QD (1-0-0-0)
     Route: 048
  7. BISOPROLOL FUMARATE [Concomitant]
     Active Substance: BISOPROLOL FUMARATE
     Indication: Cardiac failure
     Dosage: 1.25 MG, QD (0.5-0-0-0 )
     Route: 048
  8. LISINOPRIL [Concomitant]
     Active Substance: LISINOPRIL
     Indication: Cardiac failure
     Dosage: 2.5 MG, QD (0.5-0-0-0 )
     Route: 048
  9. PRAVASTATIN [Concomitant]
     Active Substance: PRAVASTATIN
     Indication: Hypercholesterolaemia
     Dosage: 20 MG, QD (1-0-0-0 )
     Route: 048
  10. NASONEX [Concomitant]
     Active Substance: MOMETASONE FUROATE
     Indication: Chronic sinusitis
     Dosage: 1 DF, BID (1-0-1-0 NASAL PUFFS )
     Route: 045
  11. ALBUTEROL SULFATE\IPRATROPIUM BROMIDE [Concomitant]
     Active Substance: ALBUTEROL SULFATE\IPRATROPIUM BROMIDE
     Indication: Bronchitis
     Dosage: 0.5 DF, BID (HALF AMPOULE TWICE DAILY)
     Route: 055
  12. Mucoclear [Concomitant]
     Indication: Bronchitis
     Dosage: 0.5 DF, BID (HALF AMPOULE TWICE DAILY
     Route: 055
  13. LATANOPROST VIATRIS [Concomitant]
     Indication: Glaucoma
     Dosage: 1 DF, BID (1-0-1-0 DROPS PER EYE )
     Route: 047

REACTIONS (12)
  - Mucosal dryness [Recovering/Resolving]
  - Visual acuity reduced [Recovering/Resolving]
  - Viral vasculitis [Recovering/Resolving]
  - Bronchitis [Not Recovered/Not Resolved]
  - Condition aggravated [Not Recovered/Not Resolved]
  - Pneumonia [Unknown]
  - Respiratory failure [Unknown]
  - Parainfluenzae viral bronchitis [Unknown]
  - Vasculitis [Unknown]
  - Proteinuria [Unknown]
  - Nephropathy [Unknown]
  - Rheumatoid factor increased [Unknown]

NARRATIVE: CASE EVENT DATE: 20240501
